FAERS Safety Report 21297165 (Version 2)
Quarter: 2022Q4

REPORT INFORMATION
  Report Type: Report from Study
  Country: CO (occurrence: CO)
  Receive Date: 20220906
  Receipt Date: 20221017
  Transmission Date: 20230113
  Serious: Yes (Other)
  Sender: FDA-Public Use
  Company Number: CO-BRISTOL-MYERS SQUIBB COMPANY-2022-100027

PATIENT
  Age: 24 Year
  Sex: Female
  Weight: 47 kg

DRUGS (1)
  1. OPDIVO [Suspect]
     Active Substance: NIVOLUMAB
     Indication: Head and neck cancer
     Dosage: DOSE - 135 MG/ML; FREQ - EVERY 15 DAYS?ROUTE OF ADMINISTRACTION: ENDOVENOUS
     Route: 065
     Dates: start: 20200907

REACTIONS (3)
  - Vaginal haemorrhage [Recovering/Resolving]
  - Intentional product use issue [Unknown]
  - Joint injury [Recovering/Resolving]

NARRATIVE: CASE EVENT DATE: 20220101
